FAERS Safety Report 19298340 (Version 2)
Quarter: 2021Q2

REPORT INFORMATION
  Report Type: Spontaneous
  Country: DE (occurrence: DE)
  Receive Date: 20210525
  Receipt Date: 20210607
  Transmission Date: 20210717
  Serious: Yes (Other)
  Sender: FDA-Public Use
  Company Number: DE-SUN PHARMACEUTICAL INDUSTRIES LTD-2021RR-297902

PATIENT
  Sex: Female

DRUGS (3)
  1. EZETIMIBE. [Suspect]
     Active Substance: EZETIMIBE
     Indication: BLOOD CHOLESTEROL INCREASED
     Dosage: 1 DOSAGE FORM, DAILY, 1 TABLET EVERY EVENING
     Route: 048
     Dates: start: 20200813, end: 20210417
  2. FOSTER 200 MIKROGRAMM/6 MIKROGRAMM PRO INHALATION DRUCKGASINHALATION [Concomitant]
     Indication: ASTHMA
     Dosage: 2 DOSAGE FORM, DAILY, ONE STROKE IN THE MORNING AND IN THE EVENING
     Route: 055
  3. THYRONAJOD 100 HENNING [Concomitant]
     Indication: PRODUCT USED FOR UNKNOWN INDICATION
     Dosage: 1 DOSAGE FORM, DAILY, 1 TABLET IN THE MORNING ON AN EMPTY STOMACH FOR ABOUT 40 YEARS
     Route: 048

REACTIONS (6)
  - Bursitis [Recovered/Resolved]
  - Vision blurred [Recovered/Resolved]
  - Gait disturbance [Recovering/Resolving]
  - Hypotonia [Recovered/Resolved]
  - Fatigue [Recovered/Resolved]
  - Muscle rupture [Unknown]
